FAERS Safety Report 7515712-0 (Version None)
Quarter: 2011Q2

REPORT INFORMATION
  Report Type: 
  Country: None (occurrence: None)
  Receive Date: 20110601
  Receipt Date: 20100729
  Transmission Date: 20111010
  Serious: Yes (Hospitalization, Disabling, Other)
  Sender: FDA-Public Use
  Company Number: US-PFIZER INC-2010054173

PATIENT
  Sex: Female

DRUGS (6)
  1. HYDROCODONE [Concomitant]
     Indication: ABDOMINAL PAIN
  2. WELLBUTRIN [Concomitant]
     Indication: SMOKING CESSATION THERAPY
     Dosage: UNK
     Dates: start: 19990101, end: 20090101
  3. WELLBUTRIN [Concomitant]
     Indication: DEPRESSION
  4. HYDROCODONE [Concomitant]
     Indication: OVARIAN CYST
     Dosage: UNK
     Dates: start: 20080101, end: 20090101
  5. CHANTIX [Suspect]
     Indication: SMOKING CESSATION THERAPY
     Dosage: 0.5MG/1MG UNK
     Dates: start: 20080502, end: 20080515
  6. EFFEXOR [Concomitant]
     Indication: DEPRESSION
     Dosage: UNK
     Dates: start: 20040101

REACTIONS (4)
  - SUICIDE ATTEMPT [None]
  - IRRITABILITY [None]
  - DEPRESSION [None]
  - ANXIETY [None]
